FAERS Safety Report 4553149-7 (Version None)
Quarter: 2005Q1

REPORT INFORMATION
  Report Type: 
  Country: None (occurrence: None)
  Receive Date: 20050114
  Receipt Date: 20030922
  Transmission Date: 20050727
  Serious: Yes (Disabling)
  Sender: FDA-Public Use
  Company Number: FR-GLAXOSMITHKLINE-B0311685A

PATIENT
  Age: 57 Year
  Sex: Female
  Weight: 69.2 kg

DRUGS (4)
  1. AVANDIA [Suspect]
     Indication: DIABETES MELLITUS NON-INSULIN-DEPENDENT
     Dosage: 8MG PER DAY
     Route: 048
     Dates: start: 20030520, end: 20031201
  2. DAONIL [Concomitant]
     Indication: DIABETES MELLITUS NON-INSULIN-DEPENDENT
     Dosage: 5MG THREE TIMES PER DAY
     Route: 048
     Dates: start: 19900101
  3. ATENOLOL [Concomitant]
     Dosage: 1UNIT PER DAY
     Route: 048
     Dates: start: 19900101
  4. PRAZOSIN HCL [Concomitant]
     Dosage: 5MG PER DAY
     Route: 048
     Dates: start: 20000101

REACTIONS (6)
  - FACE OEDEMA [None]
  - FOOT FRACTURE [None]
  - OEDEMA [None]
  - SENSATION OF HEAVINESS [None]
  - TOE AMPUTATION [None]
  - WEIGHT INCREASED [None]
